FAERS Safety Report 22235114 (Version 2)
Quarter: 2023Q2

REPORT INFORMATION
  Report Type: Spontaneous
  Country: CN (occurrence: CN)
  Receive Date: 20230420
  Receipt Date: 20230427
  Transmission Date: 20230721
  Serious: Yes (Other)
  Sender: FDA-Public Use
  Company Number: CN-BAXTER-2023BAX018632

PATIENT
  Age: 78 Year
  Sex: Male

DRUGS (3)
  1. SODIUM CHLORIDE [Suspect]
     Active Substance: SODIUM CHLORIDE
     Indication: Pneumonia
     Dosage: 0.6 GRAM DAILY INFUSION
     Route: 042
  2. LEVOFLOXACIN LACTATE [Suspect]
     Active Substance: LEVOFLOXACIN LACTATE
     Indication: Pneumonia
     Dosage: 0.6 GRAM DAILY INFUSION
     Route: 042
  3. CEFMINOX SODIUM [Concomitant]
     Active Substance: CEFMINOX SODIUM
     Indication: Pneumonia
     Dosage: 2 G ONCE PER 12 HOURS
     Route: 065

REACTIONS (2)
  - Fixed eruption [Recovered/Resolved]
  - Rash erythematous [Recovered/Resolved]
